FAERS Safety Report 8087468-7 (Version None)
Quarter: 2012Q1

REPORT INFORMATION
  Report Type: 
  Country: None (occurrence: None)
  Receive Date: 20120128
  Receipt Date: 20110502
  Transmission Date: 20120608
  Serious: No
  Sender: FDA-Public Use
  Company Number: US-ABBOTT-11P-163-0722920-00

PATIENT
  Sex: Male
  Weight: 81.72 kg

DRUGS (5)
  1. HUMIRA [Suspect]
     Route: 058
     Dates: start: 20110406
  2. VICODIN [Concomitant]
     Indication: RHEUMATOID ARTHRITIS
  3. VICODIN [Concomitant]
     Indication: MUSCULOSKELETAL PAIN
  4. PREDNISONE TAB [Concomitant]
     Indication: RHEUMATOID ARTHRITIS
     Dosage: TAPER
     Dates: start: 20110401, end: 20110401
  5. HUMIRA [Suspect]
     Indication: RHEUMATOID ARTHRITIS
     Route: 058
     Dates: start: 20100301, end: 20100901

REACTIONS (5)
  - INJECTION SITE HAEMATOMA [None]
  - INJECTION SITE ERYTHEMA [None]
  - INJECTION SITE INDURATION [None]
  - MYALGIA [None]
  - INJECTION SITE PAIN [None]
